FAERS Safety Report 21407997 (Version 2)
Quarter: 2022Q4

REPORT INFORMATION
  Report Type: Report from Study
  Country: BR (occurrence: BR)
  Receive Date: 20221004
  Receipt Date: 20221206
  Transmission Date: 20230113
  Serious: Yes (Hospitalization)
  Sender: FDA-Public Use
  Company Number: BR-BIOGEN-2022BI01158480

PATIENT
  Sex: Female
  Weight: 73 kg

DRUGS (2)
  1. TYSABRI [Suspect]
     Active Substance: NATALIZUMAB
     Indication: Multiple sclerosis
     Route: 050
     Dates: start: 201704
  2. TYSABRI [Suspect]
     Active Substance: NATALIZUMAB
     Route: 050
     Dates: start: 2018

REACTIONS (2)
  - Spinal osteoarthritis [Not Recovered/Not Resolved]
  - Dengue fever [Recovered/Resolved]

NARRATIVE: CASE EVENT DATE: 20220101
